FAERS Safety Report 9551535 (Version 1)
Quarter: 2013Q3

REPORT INFORMATION
  Report Type: Spontaneous
  Country: US (occurrence: US)
  Receive Date: 20130925
  Receipt Date: 20130925
  Transmission Date: 20140515
  Serious: No
  Sender: FDA-Public Use
  Company Number: US-BAYER-2013-113097

PATIENT
  Age: 42 Year
  Sex: Female
  Weight: 69.39 kg

DRUGS (10)
  1. BETASERON [Suspect]
     Dosage: 0.25 MG, QOD
     Route: 058
  2. ALEVE CAPLET [Concomitant]
  3. WELLBUTRIN [Concomitant]
  4. SYNTHROID [Concomitant]
  5. CABERGOLINE [Concomitant]
  6. VITAMIN B12 [Concomitant]
  7. LOZAD [Concomitant]
  8. VITAMIN D [Concomitant]
     Dosage: 400 U, UNK
  9. MIGRAINE [Concomitant]
  10. DDAVP [Concomitant]

REACTIONS (6)
  - Hypoaesthesia [Unknown]
  - Paraesthesia [Unknown]
  - Skin discolouration [Unknown]
  - Fatigue [Unknown]
  - Pruritus generalised [Unknown]
  - Oedema peripheral [Unknown]
